FAERS Safety Report 5369287-5 (Version None)
Quarter: 2007Q2

REPORT INFORMATION
  Report Type: 
  Country: None (occurrence: None)
  Receive Date: 20070625
  Receipt Date: 20070613
  Transmission Date: 20071010
  Serious: Yes (Congenital Anomaly)
  Sender: FDA-Public Use
  Company Number: CZ-ELI_LILLY_AND_COMPANY-CZ200706003692

PATIENT
  Age: 1 Day

DRUGS (1)
  1. ZYPREXA [Suspect]
     Route: 064
     Dates: end: 20070101

REACTIONS (2)
  - ATRIAL SEPTAL DEFECT [None]
  - DRUG EXPOSURE DURING PREGNANCY [None]
